FAERS Safety Report 9462406 (Version 1)
Quarter: 2013Q3

REPORT INFORMATION
  Report Type: Spontaneous
  Country: AT (occurrence: AT)
  Receive Date: 20130816
  Receipt Date: 20130816
  Transmission Date: 20140515
  Serious: Yes (Other)
  Sender: FDA-Public Use
  Company Number: PHHY2013AT086238

PATIENT
  Age: 44 Year
  Sex: Male
  Weight: 120 kg

DRUGS (4)
  1. METFORMIN [Suspect]
     Dosage: 1000 MG, BID
  2. LISINOPRIL+HYDROCHLOROTHIAZIDE [Suspect]
     Dosage: 1 DF, QD
  3. LISINOPRIL [Suspect]
     Indication: HYPERTENSION
     Dosage: HALF TABLET ONCE A DAY
  4. BEZAFIBRATE [Concomitant]
     Dosage: 400 MG, QD

REACTIONS (1)
  - Pancreatitis [Unknown]
